FAERS Safety Report 7883408 (Version 19)
Quarter: 2014Q3

REPORT INFORMATION
  Report Type: Report from Study
  Country: CA (occurrence: CA)
  Receive Date: 20110404
  Receipt Date: 20140905
  Transmission Date: 20150326
  Serious: Yes (Death, Hospitalization, Other)
  Sender: FDA-Public Use
  Company Number: PHHY2011CA24179

PATIENT
  Age: 59 Year
  Sex: Male
  Weight: 97.96 kg

DRUGS (1)
  1. SANDOSTATIN LAR DEPOT [Suspect]
     Active Substance: OCTREOTIDE ACETATE
     Indication: CARCINOID SYNDROME
     Dosage: 30 MG, EVERY 4 WEEKS
     Route: 030
     Dates: start: 20110318

REACTIONS (26)
  - Post procedural haemorrhage [Unknown]
  - Dysuria [Unknown]
  - Weight increased [Unknown]
  - Hypoglycaemia [Unknown]
  - Blood pressure systolic increased [Unknown]
  - Injection site reaction [Unknown]
  - Syringe issue [Unknown]
  - Alopecia [Recovered/Resolved]
  - Metastases to liver [Fatal]
  - Pancreatic carcinoma [Unknown]
  - Influenza like illness [Unknown]
  - Loss of consciousness [Unknown]
  - Secretion discharge [Unknown]
  - Pyelonephritis [Unknown]
  - Metastases to spine [Unknown]
  - Malignant neoplasm progression [Fatal]
  - Syncope [Unknown]
  - Needle issue [Unknown]
  - Incisional hernia [Unknown]
  - Malaise [Unknown]
  - Metastases to bone [Fatal]
  - Chills [Unknown]
  - Underdose [Unknown]
  - Injection site pain [Unknown]
  - Metastases to lung [Fatal]
  - Haematuria [Unknown]

NARRATIVE: CASE EVENT DATE: 201103
